FAERS Safety Report 20495881 (Version 1)
Quarter: 2022Q1

REPORT INFORMATION
  Report Type: Spontaneous
  Country: US (occurrence: US)
  Receive Date: 20220221
  Receipt Date: 20220221
  Transmission Date: 20220423
  Serious: Yes (Hospitalization, Other)
  Sender: FDA-Public Use
  Company Number: US-ASTELLAS-2022US004075

PATIENT
  Age: 79 Year
  Sex: Male

DRUGS (10)
  1. TAMSULOSIN HYDROCHLORIDE [Suspect]
     Active Substance: TAMSULOSIN HYDROCHLORIDE
     Indication: Pollakiuria
     Dosage: 0.4 MG, ONCE DAILY (QHS)
  2. TAMSULOSIN HYDROCHLORIDE [Suspect]
     Active Substance: TAMSULOSIN HYDROCHLORIDE
     Indication: Prostate cancer
  3. LEUPROLIDE ACETATE [Suspect]
     Active Substance: LEUPROLIDE ACETATE
     Indication: Prostate cancer stage III
     Dosage: 22.5 MG, Q3M
  4. LEUPROLIDE ACETATE [Suspect]
     Active Substance: LEUPROLIDE ACETATE
     Indication: Anal squamous cell carcinoma
  5. MITOMYCIN C [Concomitant]
     Active Substance: MITOMYCIN
     Indication: Prostate cancer stage III
     Dosage: 10 MG/M2 (ON DAYS 1 AND 29 (2 CYCLES))
  6. MITOMYCIN C [Concomitant]
     Active Substance: MITOMYCIN
     Indication: Anal squamous cell carcinoma
  7. BICALUTAMIDE [Concomitant]
     Active Substance: BICALUTAMIDE
     Indication: Prostate cancer stage III
     Dosage: 50 MG, QD
  8. BICALUTAMIDE [Concomitant]
     Active Substance: BICALUTAMIDE
     Indication: Anal squamous cell carcinoma
  9. FLUOROURACIL [Concomitant]
     Active Substance: FLUOROURACIL
     Indication: Prostate cancer stage III
     Dosage: 1000 MG/M2, ONCE DAILY ((2 CYCLES) ON DAYS 1-4 AND 29-32)
  10. FLUOROURACIL [Concomitant]
     Active Substance: FLUOROURACIL
     Indication: Anal squamous cell carcinoma

REACTIONS (6)
  - Off label use [Unknown]
  - Dehydration [Unknown]
  - Neutropenia [Unknown]
  - Lower urinary tract symptoms [Unknown]
  - Diarrhoea [Unknown]
  - Pollakiuria [Unknown]
